FAERS Safety Report 10062603 (Version 1)
Quarter: 2014Q2

REPORT INFORMATION
  Report Type: Spontaneous
  Country: HR (occurrence: HR)
  Receive Date: 20140407
  Receipt Date: 20140407
  Transmission Date: 20141212
  Serious: Yes (Other)
  Sender: FDA-Public Use
  Company Number: HR-ABBVIE-14P-216-1221646-00

PATIENT
  Age: 63 Year
  Sex: Female

DRUGS (5)
  1. MAKCIN SR 500 MG TABLETS [Suspect]
     Indication: BRONCHITIS
     Route: 048
     Dates: start: 20140310, end: 20140311
  2. KLAVOCIN [Suspect]
     Indication: PRODUCT USED FOR UNKNOWN INDICATION
     Route: 048
     Dates: start: 20140311
  3. PREXANIL COMBI A [Concomitant]
     Indication: ESSENTIAL HYPERTENSION
     Route: 048
     Dates: start: 2009
  4. BYOL COR [Concomitant]
     Indication: ESSENTIAL HYPERTENSION
     Route: 048
     Dates: start: 2007
  5. LACIPIL [Concomitant]
     Indication: ESSENTIAL HYPERTENSION
     Route: 048
     Dates: start: 2005

REACTIONS (3)
  - Haemoptysis [Unknown]
  - Palpitations [Unknown]
  - Dyspnoea [Unknown]
